FAERS Safety Report 5844684-X (Version None)
Quarter: 2008Q3

REPORT INFORMATION
  Report Type: 
  Country: None (occurrence: None)
  Receive Date: 20080812
  Receipt Date: 20080806
  Transmission Date: 20090109
  Serious: Yes (Death, Hospitalization)
  Sender: FDA-Public Use
  Company Number: 2008-02895

PATIENT
  Age: 51 Year

DRUGS (1)
  1. VELCADE [Suspect]
     Indication: MULTIPLE MYELOMA
     Dosage: 1.3 MG/M2 UNK INTRAVENOUS
     Route: 042
     Dates: start: 20080616

REACTIONS (6)
  - BONE PAIN [None]
  - FRACTURE [None]
  - GAIT DISTURBANCE [None]
  - NERVE INJURY [None]
  - NEUROPATHY PERIPHERAL [None]
  - RENAL DISORDER [None]
